FAERS Safety Report 24557325 (Version 1)
Quarter: 2024Q4

REPORT INFORMATION
  Report Type: Report from Study
  Country: DE (occurrence: DE)
  Receive Date: 20241028
  Receipt Date: 20241028
  Transmission Date: 20250114
  Serious: Yes (Hospitalization)
  Sender: MYLAN
  Company Number: DE-ABBVIE-5959172

PATIENT
  Age: 74 Year
  Sex: Female

DRUGS (5)
  1. METHOTREXATE [Suspect]
     Active Substance: METHOTREXATE
     Indication: Rheumatoid arthritis
     Dosage: 15 MILLIGRAM (STOP DATE TEXT: BETWEEN 08 DEC 2022 AND 07 MAR 2023START DATE TEXT: BETWEEN 08 DEC 202
     Route: 065
  2. METHOTREXATE [Suspect]
     Active Substance: METHOTREXATE
     Dosage: 12.5 MILLIGRAM (STOP DATE TEXT: BETWEEN 18 SEP 2023 AND12 FEB 2024START DATE TEXT: BETWEEN 18 SEP 20
     Route: 065
  3. METHOTREXATE [Suspect]
     Active Substance: METHOTREXATE
     Dosage: 20 MILLIGRAM (START DATE TEXT: BEFORE 28 MAR 2017)
     Route: 065
  4. RINVOQ [Suspect]
     Active Substance: UPADACITINIB
     Indication: Rheumatoid arthritis
     Dosage: 15 MILLIGRAM
     Route: 048
     Dates: start: 202102, end: 202212
  5. LEFLUNOMIDE [Concomitant]
     Active Substance: LEFLUNOMIDE
     Indication: Product used for unknown indication
     Dosage: 20 MILLIGRAM
     Route: 065

REACTIONS (10)
  - Chronic kidney disease [Recovered/Resolved]
  - Spinal osteoarthritis [Recovered/Resolved]
  - Osteoarthritis [Recovered/Resolved]
  - Renal function test abnormal [Recovered/Resolved]
  - Rotator cuff syndrome [Unknown]
  - Bone fragmentation [Unknown]
  - Joint effusion [Unknown]
  - Vertigo [Unknown]
  - Kidney duplex [Unknown]
  - Diarrhoea [Unknown]

NARRATIVE: CASE EVENT DATE: 20230912
